FAERS Safety Report 9395546 (Version 2)
Quarter: 2013Q3

REPORT INFORMATION
  Report Type: Spontaneous
  Country: CN (occurrence: CN)
  Receive Date: 20130711
  Receipt Date: 20130819
  Transmission Date: 20140515
  Serious: Yes (Other)
  Sender: FDA-Public Use
  Company Number: CN-ASTELLAS-2013JP007481

PATIENT
  Age: 45 Year
  Sex: Male

DRUGS (2)
  1. PROGRAF [Suspect]
     Indication: NEPHROTIC SYNDROME
     Route: 048
  2. HORMONES [Concomitant]
     Route: 065

REACTIONS (3)
  - Off label use [Recovered/Resolved]
  - Intraocular pressure increased [Recovered/Resolved]
  - Visual acuity reduced [Unknown]
